FAERS Safety Report 7238186-6 (Version None)
Quarter: 2011Q1

REPORT INFORMATION
  Report Type: 
  Country: None (occurrence: None)
  Receive Date: 20110121
  Receipt Date: 20110118
  Transmission Date: 20110831
  Serious: No
  Sender: FDA-Public Use
  Company Number: US-PFIZER INC-2011013953

PATIENT
  Age: 62 Year
  Sex: Female
  Weight: 68.027 kg

DRUGS (1)
  1. ADVIL COLD AND SINUS [Suspect]
     Indication: NASAL CONGESTION
     Dosage: UNK
     Route: 048
     Dates: start: 20110116

REACTIONS (2)
  - DRUG INEFFECTIVE [None]
  - INSOMNIA [None]
